FAERS Safety Report 18528207 (Version 1)
Quarter: 2020Q4

REPORT INFORMATION
  Report Type: Spontaneous
  Country: US (occurrence: US)
  Receive Date: 20201120
  Receipt Date: 20201120
  Transmission Date: 20210114
  Serious: Yes (Other)
  Sender: FDA-Public Use
  Company Number: NVSC2020US303804

PATIENT
  Sex: Male
  Weight: 104 kg

DRUGS (1)
  1. KYMRIAH [Suspect]
     Active Substance: TISAGENLECLEUCEL
     Indication: ACUTE LYMPHOCYTIC LEUKAEMIA
     Dosage: 16 ML, ONCE/SINGLE
     Route: 042
     Dates: start: 20201005, end: 20201005

REACTIONS (1)
  - Drug ineffective [Not Recovered/Not Resolved]
